FAERS Safety Report 4323187-8 (Version None)
Quarter: 2004Q1

REPORT INFORMATION
  Report Type: 
  Country: None (occurrence: None)
  Receive Date: 20040322
  Receipt Date: 20040305
  Transmission Date: 20041129
  Serious: Yes (Hospitalization)
  Sender: FDA-Public Use
  Company Number: 192148

PATIENT
  Age: 32 Year
  Sex: Female
  Weight: 61.2356 kg

DRUGS (2)
  1. AVONEX [Suspect]
     Indication: MULTIPLE SCLEROSIS
     Dosage: 30 MCG QW IM
     Route: 030
     Dates: start: 20030301
  2. ACETAMINOPHEN [Concomitant]

REACTIONS (2)
  - GASTRIC BYPASS [None]
  - MULTIPLE SCLEROSIS RELAPSE [None]
